FAERS Safety Report 10605645 (Version 2)
Quarter: 2014Q4

REPORT INFORMATION
  Report Type: Spontaneous
  Country: IT (occurrence: IT)
  Receive Date: 20141125
  Receipt Date: 20141215
  Transmission Date: 20150529
  Serious: Yes (Other)
  Sender: FDA-Public Use
  Company Number: IT-ACCORD-027230

PATIENT
  Age: 61 Year
  Sex: Male
  Weight: 97 kg

DRUGS (6)
  1. TRIATEC [Concomitant]
     Active Substance: RAMIPRIL
  2. GEMCITABINE/GEMCITABINE HYDROCHLORIDE [Suspect]
     Active Substance: GEMCITABINE\GEMCITABINE HYDROCHLORIDE
     Indication: RENAL CANCER
     Route: 042
     Dates: start: 20140709
  3. CARBOPLATIN. [Suspect]
     Active Substance: CARBOPLATIN
     Indication: RENAL CANCER
     Route: 042
     Dates: start: 20140709
  4. OMEPRAZEN [Concomitant]
     Active Substance: OMEPRAZOLE
  5. TAPAZOLE [Concomitant]
     Active Substance: METHIMAZOLE
  6. DIAMICRON [Concomitant]
     Active Substance: GLICLAZIDE

REACTIONS (4)
  - Neutropenia [Recovering/Resolving]
  - Off label use [Unknown]
  - Leukopenia [Recovering/Resolving]
  - Diarrhoea [Recovering/Resolving]

NARRATIVE: CASE EVENT DATE: 20140710
